FAERS Safety Report 6042232-5 (Version None)
Quarter: 2009Q1

REPORT INFORMATION
  Report Type: 
  Country: None (occurrence: None)
  Receive Date: 20090116
  Receipt Date: 20090107
  Transmission Date: 20090719
  Serious: Yes (Death, Life-Threatening)
  Sender: FDA-Public Use
  Company Number: JP-ABBOTT-09P-087-0497113-00

PATIENT
  Age: 68 Year
  Sex: Male

DRUGS (3)
  1. LEUPROLIDE ACETATE [Suspect]
     Indication: PROSTATE CANCER STAGE III
     Route: 058
     Dates: start: 20060301, end: 20070514
  2. LEUPROLIDE ACETATE [Suspect]
     Dates: start: 20050829, end: 20060201
  3. CASODEX [Concomitant]
     Indication: PROSTATE CANCER STAGE III
     Route: 048

REACTIONS (1)
  - LUNG NEOPLASM MALIGNANT [None]
